FAERS Safety Report 11049222 (Version 2)
Quarter: 2015Q3

REPORT INFORMATION
  Report Type: Spontaneous
  Country: US (occurrence: US)
  Receive Date: 20150420
  Receipt Date: 20150729
  Transmission Date: 20151125
  Serious: Yes (Hospitalization)
  Sender: FDA-Public Use
  Company Number: US-ASTRAZENECA-2015SE34075

PATIENT
  Sex: Female
  Weight: 2.5 kg

DRUGS (13)
  1. SYNAGIS [Suspect]
     Active Substance: PALIVIZUMAB
     Indication: PREMATURE LABOUR
     Dosage: 4TH DOSE
     Route: 030
     Dates: start: 20150214
  2. RANITIDINE [Concomitant]
     Active Substance: RANITIDINE\RANITIDINE HYDROCHLORIDE
     Indication: GASTROOESOPHAGEAL REFLUX DISEASE
  3. SYNAGIS [Suspect]
     Active Substance: PALIVIZUMAB
     Indication: PREMATURE LABOUR
     Dosage: 100 MG/1ML VL LIQUID/ 50MG/0.5 ML VL LIQUID/ 15 MG MONTHLY
     Route: 030
  4. SYNAGIS [Suspect]
     Active Substance: PALIVIZUMAB
     Indication: HEART DISEASE CONGENITAL
     Dosage: 100 MG/1ML VL LIQUID/ 50MG/0.5 ML VL LIQUID/ 15 MG MONTHLY
     Route: 030
  5. SYNAGIS [Suspect]
     Active Substance: PALIVIZUMAB
     Indication: HEART DISEASE CONGENITAL
     Dosage: 1ST DOSE- WHILE IN HOSPITAL
     Route: 030
     Dates: start: 20141118
  6. SYNAGIS [Suspect]
     Active Substance: PALIVIZUMAB
     Indication: PREMATURE LABOUR
     Dosage: 2ND DOSE
     Route: 030
     Dates: start: 20141226
  7. SYNAGIS [Suspect]
     Active Substance: PALIVIZUMAB
     Indication: PREMATURE LABOUR
     Dosage: 1ST DOSE- WHILE IN HOSPITAL
     Route: 030
     Dates: start: 20141118
  8. SYNAGIS [Suspect]
     Active Substance: PALIVIZUMAB
     Indication: HEART DISEASE CONGENITAL
     Dosage: 5TH DOSE
     Route: 030
     Dates: start: 20150314
  9. SYNAGIS [Suspect]
     Active Substance: PALIVIZUMAB
     Indication: HEART DISEASE CONGENITAL
     Dosage: 2ND DOSE
     Route: 030
     Dates: start: 20141226
  10. SYNAGIS [Suspect]
     Active Substance: PALIVIZUMAB
     Indication: PREMATURE LABOUR
     Dosage: 3RD DOSE
     Route: 030
     Dates: start: 20150127
  11. SYNAGIS [Suspect]
     Active Substance: PALIVIZUMAB
     Indication: HEART DISEASE CONGENITAL
     Dosage: 3RD DOSE
     Route: 030
     Dates: start: 20150127
  12. SYNAGIS [Suspect]
     Active Substance: PALIVIZUMAB
     Indication: HEART DISEASE CONGENITAL
     Dosage: 4TH DOSE
     Route: 030
     Dates: start: 20150214
  13. SYNAGIS [Suspect]
     Active Substance: PALIVIZUMAB
     Indication: PREMATURE LABOUR
     Dosage: 5TH DOSE
     Route: 030
     Dates: start: 20150314

REACTIONS (6)
  - Right ventricular dysfunction [Unknown]
  - Pulmonary artery dilatation [Unknown]
  - Cardiac pseudoaneurysm [Unknown]
  - Tracheomalacia [Unknown]
  - Gastrooesophageal reflux disease [Not Recovered/Not Resolved]
  - Vomiting [Unknown]
